FAERS Safety Report 4811973-7 (Version None)
Quarter: 2005Q4

REPORT INFORMATION
  Report Type: 
  Country: None (occurrence: None)
  Receive Date: 20051027
  Receipt Date: 20051027
  Transmission Date: 20060501
  Serious: No
  Sender: FDA-Public Use
  Company Number: None

PATIENT
  Sex: Female
  Weight: 66.14 kg

DRUGS (1)
  1. PROMETHAZINE [Suspect]
     Indication: NAUSEA
     Dosage: 25 MG   Q4H    IV   (1 DOSE)
     Route: 042
     Dates: start: 20051024, end: 20051024

REACTIONS (2)
  - CONFUSIONAL STATE [None]
  - DIZZINESS [None]
